FAERS Safety Report 6461981-8 (Version None)
Quarter: 2009Q4

REPORT INFORMATION
  Report Type: 
  Country: None (occurrence: None)
  Receive Date: 20091024
  Receipt Date: 20091109
  Transmission Date: 20100525
  Serious: Yes (Hospitalization)
  Sender: FDA-Public Use
  Company Number: 2009AC000331

PATIENT
  Age: 63 Year
  Sex: Male

DRUGS (27)
  1. DIGOXIN [Suspect]
     Dosage: PO
     Route: 048
  2. METOPROLOL [Concomitant]
  3. ASPIRIN [Concomitant]
  4. NITROOUICK [Concomitant]
  5. NEXIUM [Concomitant]
  6. PRILOSEC [Concomitant]
  7. CYMBALTA [Concomitant]
  8. FENTANYL CITRATE [Concomitant]
  9. SPIRIVA [Concomitant]
  10. MIRALAX [Concomitant]
  11. COUMADIN [Concomitant]
  12. LOPRESSOR [Concomitant]
  13. PLAVIX [Concomitant]
  14. HYDROCODONE [Concomitant]
  15. FOSAMAX [Concomitant]
  16. AUGMENTIN [Concomitant]
  17. DURAGESIC-100 [Concomitant]
  18. OMEPRAZOLE [Concomitant]
  19. METOPROLOL [Concomitant]
  20. MECLIZINE [Concomitant]
  21. TESTIM [Concomitant]
  22. HYDROCODONE [Concomitant]
  23. OXYCODONE [Concomitant]
  24. CEPHALEXIN [Concomitant]
  25. METOCLOPRAMIDE [Concomitant]
  26. NABUMETONE [Concomitant]
  27. NITROSTAT [Concomitant]

REACTIONS (17)
  - ABDOMINAL DISTENSION [None]
  - ANGINA PECTORIS [None]
  - ANXIETY [None]
  - ATRIAL FIBRILLATION [None]
  - CHEST DISCOMFORT [None]
  - CHEST PAIN [None]
  - COLONIC POLYP [None]
  - CORONARY ARTERY DISEASE [None]
  - DECREASED APPETITE [None]
  - DYSPNOEA [None]
  - ECONOMIC PROBLEM [None]
  - EPISTAXIS [None]
  - MULTIPLE INJURIES [None]
  - OESOPHAGITIS [None]
  - PAIN [None]
  - PALPITATIONS [None]
  - WEIGHT INCREASED [None]
